FAERS Safety Report 23098473 (Version 8)
Quarter: 2024Q1

REPORT INFORMATION
  Report Type: Spontaneous
  Country: IT (occurrence: IT)
  Receive Date: 20231023
  Receipt Date: 20240314
  Transmission Date: 20240410
  Serious: Yes (Death, Hospitalization)
  Sender: FDA-Public Use
  Company Number: IT-ASGENIA-AS2023004997

PATIENT
  Age: 17 Year
  Sex: Female
  Weight: 56 kg

DRUGS (19)
  1. CLOZAPINE [Suspect]
     Active Substance: CLOZAPINE
     Dosage: 12.5 MG X 2 /DIE Q12H
     Route: 048
  2. CLOZAPINE [Suspect]
     Active Substance: CLOZAPINE
     Indication: Psychotic disorder
     Dosage: 100 MG
     Route: 065
  3. CLONIDINE [Suspect]
     Active Substance: CLONIDINE
     Indication: Product used for unknown indication
     Dosage: UNK
     Route: 065
  4. COTRIMOXAZOLE [Suspect]
     Active Substance: SULFAMETHOXAZOLE\TRIMETHOPRIM
     Indication: Palliative care
     Dosage: UNKNOWN, AS NEEDED
     Route: 065
     Dates: start: 2022
  5. DULOXETINE [Suspect]
     Active Substance: DULOXETINE
     Indication: Palliative sedation
     Dosage: UNKNOWN, NEEDED
     Route: 065
     Dates: start: 2022
  6. DEXAMETHASONE [Suspect]
     Active Substance: DEXAMETHASONE
     Indication: Palliative care
     Dosage: UNKNOWN, AS NEEDED
     Route: 065
     Dates: start: 2022
  7. FENTANYL [Suspect]
     Active Substance: FENTANYL\FENTANYL CITRATE
     Indication: Palliative care
     Dosage: UNK
     Route: 062
     Dates: start: 2022
  8. MIDAZOLAM [Suspect]
     Active Substance: MIDAZOLAM
     Dosage: UNK
     Route: 042
  9. MIDAZOLAM [Suspect]
     Active Substance: MIDAZOLAM
     Indication: Product used for unknown indication
     Dosage: UNK ROUTE OF ADMIN (FREE TEXT): INTRAVENOUS (NOT OTHERWISE SPECIFIED)
     Route: 065
  10. MORPHINE [Suspect]
     Active Substance: MORPHINE
     Dosage: UNK (INFUSION)
     Route: 042
  11. MORPHINE [Suspect]
     Active Substance: MORPHINE
     Indication: Palliative care
     Dosage: UNK(INFUSION) INTRAVENOUS BOLUSES
     Route: 042
  12. MORPHINE [Suspect]
     Active Substance: MORPHINE
     Dosage: UNKIMMEDIATE-RELEASE, AS NECESSARY
     Route: 048
  13. MORPHINE [Suspect]
     Active Substance: MORPHINE
     Indication: Pain
     Dosage: IMMEDIATE-RELEASE, AS NECESSARY
     Route: 048
     Dates: start: 2022
  14. OMEPRAZOLE [Suspect]
     Active Substance: OMEPRAZOLE
     Indication: Palliative care
     Dosage: UNKNOWN, AS NEEDED
     Route: 065
     Dates: start: 2022
  15. ONDANSETRON [Suspect]
     Active Substance: ONDANSETRON
     Indication: Palliative care
     Dosage: UNKNOWN, AS NEEDED (ORODISPERSIBLE FILM)
     Route: 065
     Dates: start: 2022
  16. ACETAMINOPHEN [Suspect]
     Active Substance: ACETAMINOPHEN
     Indication: Pain
     Dosage: UNK,PRN
     Route: 065
     Dates: start: 2022
  17. PREGABALIN [Suspect]
     Active Substance: PREGABALIN
     Indication: Palliative care
     Dosage: UNKNOWN, AS NEEDED
     Route: 065
     Dates: start: 2022
  18. PROPOFOL [Suspect]
     Active Substance: PROPOFOL
     Indication: Product used for unknown indication
     Dosage: UNK
     Route: 065
  19. ROPIVACAINE HYDROCHLORIDE [Suspect]
     Active Substance: ROPIVACAINE HYDROCHLORIDE
     Indication: Analgesic therapy
     Dosage: INFUSION
     Route: 065

REACTIONS (22)
  - Pain [Fatal]
  - Pyrexia [Unknown]
  - Vomiting [Unknown]
  - Psychomotor hyperactivity [Unknown]
  - Anxiety [Unknown]
  - Nausea [Recovering/Resolving]
  - Pyrexia [Unknown]
  - Anxiety [Unknown]
  - Dyspnoea [Unknown]
  - Weight decreased [Unknown]
  - Feeling of despair [Unknown]
  - Urine output decreased [Unknown]
  - Haematuria [Unknown]
  - Decreased appetite [Unknown]
  - Asthenia [Unknown]
  - Product use in unapproved indication [Unknown]
  - Movement disorder [Recovering/Resolving]
  - Dizziness [Recovering/Resolving]
  - Dizziness [Recovering/Resolving]
  - Drug ineffective [Unknown]
  - Off label use [Recovered/Resolved]
  - Anxiety [Unknown]

NARRATIVE: CASE EVENT DATE: 20220101
